FAERS Safety Report 20710469 (Version 1)
Quarter: 2022Q2

REPORT INFORMATION
  Report Type: Spontaneous
  Country: US (occurrence: None)
  Receive Date: 20220414
  Receipt Date: 20220414
  Transmission Date: 20220721
  Serious: Yes (Death, Life-Threatening, Hospitalization, Other)
  Sender: FDA-Public Use
  Company Number: None

PATIENT
  Age: 63 Year
  Sex: Male
  Weight: 97.52 kg

DRUGS (3)
  1. METFORMIN HYDROCHLORIDE [Suspect]
     Active Substance: METFORMIN HYDROCHLORIDE
     Indication: Diabetes mellitus
     Dosage: OTHER QUANTITY : 2 PILLS?2X DAY BY MOUTH?
     Route: 048
     Dates: start: 201609, end: 20220210
  2. Sxaaglipin 25 [Concomitant]
  3. GLIPIZIDE [Concomitant]
     Active Substance: GLIPIZIDE

REACTIONS (4)
  - Illness [None]
  - Renal failure [None]
  - Hepatic failure [None]
  - Toxicity to various agents [None]

NARRATIVE: CASE EVENT DATE: 20220208
